FAERS Safety Report 14148699 (Version 1)
Quarter: 2017Q4

REPORT INFORMATION
  Report Type: Spontaneous
  Country: US (occurrence: US)
  Receive Date: 20171031
  Receipt Date: 20171031
  Transmission Date: 20180321
  Serious: No
  Sender: FDA-Public Use
  Company Number: None

PATIENT
  Sex: Female
  Weight: 70.65 kg

DRUGS (3)
  1. AMBIEN [Concomitant]
     Active Substance: ZOLPIDEM TARTRATE
  2. IBUPROFEN. [Concomitant]
     Active Substance: IBUPROFEN
  3. POLYMYXIN B SULFATE AND TRIMETHOPRIM [Suspect]
     Active Substance: POLYMYXIN B SULFATE\TRIMETHOPRIM SULFATE
     Indication: CONJUNCTIVITIS
     Dosage: ?          QUANTITY:2 DROP(S);?
     Route: 047
     Dates: start: 20171024, end: 20171027

REACTIONS (2)
  - Eye irritation [None]
  - Burning sensation [None]

NARRATIVE: CASE EVENT DATE: 20171025
